FAERS Safety Report 9893126 (Version 2)
Quarter: 2014Q1

REPORT INFORMATION
  Report Type: Spontaneous
  Country: FR (occurrence: FR)
  Receive Date: 20140213
  Receipt Date: 20140317
  Transmission Date: 20141002
  Serious: Yes (Hospitalization)
  Sender: FDA-Public Use
  Company Number: FR-ROCHE-1347210

PATIENT
  Age: 67 Year
  Sex: Male

DRUGS (3)
  1. AVASTIN [Suspect]
     Indication: LUNG CANCER METASTATIC
     Dosage: LAST DOSE PRIOR TO EVENT ON 31/DEC/2013
     Route: 041
     Dates: start: 20131128
  2. CISPLATINE MYLAN [Suspect]
     Indication: LUNG CANCER METASTATIC
     Dosage: LAST DOSE PRIOR TO EVENT ON 31/DEC/2013
     Route: 041
     Dates: start: 20131128, end: 20131231
  3. ALIMTA [Suspect]
     Indication: LUNG CANCER METASTATIC
     Dosage: LAST DOSE PRIOR TO EVENT ON 31/DEC/2013
     Route: 041
     Dates: start: 20131128

REACTIONS (1)
  - Bone marrow failure [Recovered/Resolved]
